FAERS Safety Report 8566309-5 (Version None)
Quarter: 2012Q3

REPORT INFORMATION
  Report Type: 
  Country: None (occurrence: None)
  Receive Date: 20120803
  Receipt Date: 20110816
  Transmission Date: 20120928
  Serious: No
  Sender: FDA-Public Use
  Company Number: US-ABBOTT-11P-163-0846878-00

PATIENT
  Age: 67 Year
  Sex: Female
  Weight: 64.014 kg

DRUGS (10)
  1. VITAMIN D [Concomitant]
     Indication: PRODUCT USED FOR UNKNOWN INDICATION
  2. ZOLOFT [Concomitant]
     Indication: PRODUCT USED FOR UNKNOWN INDICATION
  3. NEXIUM [Concomitant]
     Indication: PRODUCT USED FOR UNKNOWN INDICATION
  4. CALCIUM [Concomitant]
     Indication: PRODUCT USED FOR UNKNOWN INDICATION
  5. COQ MAX [Concomitant]
     Indication: PRODUCT USED FOR UNKNOWN INDICATION
  6. TRAZODONE HYDROCHLORIDE [Concomitant]
     Indication: INSOMNIA
  7. MENEST [Concomitant]
     Indication: PRODUCT USED FOR UNKNOWN INDICATION
  8. NIASPAN [Suspect]
     Indication: BLOOD CHOLESTEROL INCREASED
     Dates: start: 20110728
  9. SALAGEN [Concomitant]
     Indication: PRODUCT USED FOR UNKNOWN INDICATION
  10. LEVOTHYROXINE SODIUM [Concomitant]
     Indication: PRODUCT USED FOR UNKNOWN INDICATION

REACTIONS (5)
  - FLUSHING [None]
  - PRURITUS [None]
  - ERYTHEMA [None]
  - SKIN BURNING SENSATION [None]
  - PARAESTHESIA [None]
